FAERS Safety Report 23661023 (Version 3)
Quarter: 2024Q2

REPORT INFORMATION
  Report Type: Report from Study
  Country: US (occurrence: US)
  Receive Date: 20240322
  Receipt Date: 20240516
  Transmission Date: 20240716
  Serious: Yes (Hospitalization)
  Sender: FDA-Public Use
  Company Number: US-DECIPHERA PHARMACEUTICALS LLC-2024US000240

PATIENT
  Age: 73 Year
  Sex: Male

DRUGS (7)
  1. QINLOCK [Suspect]
     Active Substance: RIPRETINIB
     Indication: Gastrointestinal stromal tumour
     Dosage: 150 MILLIGRAM, QD
     Route: 048
     Dates: start: 20220131
  2. QINLOCK [Suspect]
     Active Substance: RIPRETINIB
     Dosage: 150 MILLIGRAM, QD
     Route: 048
     Dates: end: 20240228
  3. QINLOCK [Suspect]
     Active Substance: RIPRETINIB
     Dosage: UNK UNK
     Dates: start: 20240309, end: 20240316
  4. QINLOCK [Suspect]
     Active Substance: RIPRETINIB
     Dosage: UNK UNK
     Dates: start: 20240327
  5. APIXABAN [Suspect]
     Active Substance: APIXABAN
     Indication: Pulmonary embolism
     Dosage: UNK
     Dates: end: 20240228
  6. APIXABAN [Suspect]
     Active Substance: APIXABAN
     Dosage: UNK
     Dates: start: 20240229, end: 20240316
  7. APIXABAN [Suspect]
     Active Substance: APIXABAN
     Dosage: UNK
     Dates: start: 20240319

REACTIONS (2)
  - Oesophagitis haemorrhagic [Recovered/Resolved]
  - Malignant gastric ulcer [Unknown]

NARRATIVE: CASE EVENT DATE: 20240228
